FAERS Safety Report 7197981-2 (Version None)
Quarter: 2010Q4

REPORT INFORMATION
  Report Type: 
  Country: None (occurrence: None)
  Receive Date: 20101227
  Receipt Date: 20101217
  Transmission Date: 20110411
  Serious: Yes (Hospitalization)
  Sender: FDA-Public Use
  Company Number: FR-ROCHE-749104

PATIENT
  Sex: Female

DRUGS (5)
  1. AVASTIN [Suspect]
     Dosage: FORM: DRIP SOLUTION; STRENGTH: 25 MG/ML
     Route: 042
  2. ZOPHREN [Suspect]
     Dosage: STRENGTH: 8 MG/4 ML, FORM: INJECTABLE SOLUTION IN PREFILLED SYRINGE
     Route: 042
  3. CAELYX [Suspect]
     Dosage: STRENGTH: 2 MG/ML; FORM: DRIP SOLUTION
     Route: 042
  4. EZETROL [Concomitant]
  5. CARBOPLATIN [Concomitant]

REACTIONS (4)
  - ABDOMINAL PAIN [None]
  - BACK PAIN [None]
  - FEELING HOT [None]
  - HYPOTENSION [None]
